FAERS Safety Report 22303313 (Version 1)
Quarter: 2023Q2

REPORT INFORMATION
  Report Type: Spontaneous
  Country: US (occurrence: US)
  Receive Date: 20230510
  Receipt Date: 20230510
  Transmission Date: 20230722
  Serious: Yes (Other)
  Sender: FDA-Public Use
  Company Number: US-FreseniusKabi-FK202306064

PATIENT
  Age: 50 Year
  Sex: Female

DRUGS (4)
  1. DEXAMETHASONE [Suspect]
     Active Substance: DEXAMETHASONE
     Indication: Spinal stenosis
     Dosage: C5-6 INTERLAMINAR EPIDURAL STEROID INJECTION
     Route: 008
  2. MIDAZOLAM [Concomitant]
     Active Substance: MIDAZOLAM
     Indication: Sedation
  3. PROPOFOL [Concomitant]
     Active Substance: PROPOFOL
     Indication: Sedation
  4. Sodium-chloride (saline) [Concomitant]
     Indication: Product used for unknown indication

REACTIONS (1)
  - Spinal cord injury [Not Recovered/Not Resolved]
